FAERS Safety Report 16931001 (Version 2)
Quarter: 2019Q4

REPORT INFORMATION
  Report Type: Spontaneous
  Country: US (occurrence: US)
  Receive Date: 20191017
  Receipt Date: 20191025
  Transmission Date: 20200122
  Serious: Yes (Hospitalization, Disabling, Congenital Anomaly, Other)
  Sender: FDA-Public Use
  Company Number: US-HIKMA PHARMACEUTICALS USA INC.-US-H14001-19-05339

PATIENT
  Age: 8 Month
  Sex: Male

DRUGS (1)
  1. METHOTREXATE. [Suspect]
     Active Substance: METHOTREXATE
     Indication: ABORTION INDUCED
     Route: 064

REACTIONS (16)
  - Congenital spinal stenosis [Unknown]
  - Brachycephaly [Unknown]
  - Craniosynostosis [Unknown]
  - Spinal cord compression [Unknown]
  - Teratogenicity [Unknown]
  - Facial asymmetry [Unknown]
  - Clinodactyly [Unknown]
  - Limb reduction defect [Recovered/Resolved]
  - Talipes [Unknown]
  - Kidney malformation [Unknown]
  - Developmental hip dysplasia [Unknown]
  - Foetal exposure during pregnancy [Recovered/Resolved]
  - Off label use [Recovered/Resolved]
  - Radioulnar synostosis [Unknown]
  - Limb hypoplasia congenital [Recovering/Resolving]
  - Dislocation of vertebra [Unknown]
